FAERS Safety Report 17295382 (Version 3)
Quarter: 2020Q2

REPORT INFORMATION
  Report Type: Spontaneous
  Country: ES (occurrence: ES)
  Receive Date: 20200121
  Receipt Date: 20200528
  Transmission Date: 20200713
  Serious: Yes (Other)
  Sender: FDA-Public Use
  Company Number: ES-ROCHE-2451309

PATIENT
  Age: 49 Year
  Sex: Female
  Weight: 69 kg

DRUGS (10)
  1. CAPECITABINE. [Suspect]
     Active Substance: CAPECITABINE
     Indication: BREAST NEOPLASM
     Route: 048
  2. AMITRIPTYLINE [Concomitant]
     Active Substance: AMITRIPTYLINE
  3. HERCEPTIN [Suspect]
     Active Substance: TRASTUZUMAB
     Indication: BREAST NEOPLASM
     Route: 065
  4. FORTASEC [LOPERAMIDE] [Concomitant]
     Active Substance: LOPERAMIDE
  5. TRASTUZUMAB EMTANSINE [Suspect]
     Active Substance: ADO-TRASTUZUMAB EMTANSINE
     Indication: BREAST NEOPLASM
     Route: 065
  6. PRIMPERAN [Concomitant]
     Active Substance: METOCLOPRAMIDE HYDROCHLORIDE
  7. XELODA [Concomitant]
     Active Substance: CAPECITABINE
     Route: 048
  8. PERTUZUMAB. [Concomitant]
     Active Substance: PERTUZUMAB
     Route: 065
  9. LAPATINIB [Suspect]
     Active Substance: LAPATINIB
     Indication: BREAST NEOPLASM
     Route: 065
  10. PREDNISONE. [Concomitant]
     Active Substance: PREDNISONE

REACTIONS (9)
  - Neoplasm recurrence [Unknown]
  - Radiation pneumonitis [Unknown]
  - Headache [Unknown]
  - Disease progression [Unknown]
  - Muscle contracture [Unknown]
  - Toxicity to various agents [Unknown]
  - Disease recurrence [Unknown]
  - Skin toxicity [Unknown]
  - Neoplasm progression [Unknown]

NARRATIVE: CASE EVENT DATE: 201204
